FAERS Safety Report 4818028-6 (Version None)
Quarter: 2005Q4

REPORT INFORMATION
  Report Type: 
  Country: None (occurrence: None)
  Receive Date: 20051102
  Receipt Date: 20050914
  Transmission Date: 20060501
  Serious: Yes (Hospitalization)
  Sender: FDA-Public Use
  Company Number: JP-BRISTOL-MYERS SQUIBB COMPANY-13129721

PATIENT
  Age: 29 Year
  Sex: Male

DRUGS (10)
  1. EFAVIRENZ [Suspect]
     Indication: HIV INFECTION
     Route: 048
     Dates: start: 20030625
  2. ZERIT [Suspect]
     Indication: HIV INFECTION
     Route: 048
     Dates: start: 20030701
  3. EPIVIR [Suspect]
     Indication: HIV INFECTION
     Route: 048
     Dates: start: 20030625
  4. RIFABUTIN [Suspect]
     Indication: MYCOBACTERIUM AVIUM COMPLEX INFECTION
     Dates: start: 20030702
  5. ESANBUTOL [Suspect]
     Indication: MYCOBACTERIUM AVIUM COMPLEX INFECTION
     Route: 048
     Dates: start: 20030630
  6. ZITHROMAC [Suspect]
     Indication: MYCOBACTERIUM AVIUM COMPLEX INFECTION
     Dosage: 30-JUN-2003 TO 23-JUL-2003 500 MG/DAY, THEN INCREASED ON 24-JUL-2003 TO 600 MG/DAY
     Route: 048
     Dates: start: 20030630
  7. DENOSINE [Suspect]
     Indication: MYCOBACTERIUM AVIUM COMPLEX INFECTION
     Route: 042
     Dates: start: 20030620, end: 20030815
  8. DENOSINE [Suspect]
     Indication: CYTOMEGALOVIRUS CHORIORETINITIS
     Route: 042
     Dates: start: 20030620, end: 20030815
  9. COTRIM [Suspect]
     Dates: start: 20030620
  10. RETROVIR [Concomitant]
     Indication: HIV INFECTION
     Dates: start: 20030625, end: 20030630

REACTIONS (2)
  - CEREBRAL TOXOPLASMOSIS [None]
  - IMMUNE RECONSTITUTION SYNDROME [None]
